FAERS Safety Report 7089636-X (Version None)
Quarter: 2010Q4

REPORT INFORMATION
  Report Type: 
  Country: None (occurrence: None)
  Receive Date: 20101108
  Receipt Date: 20101028
  Transmission Date: 20110411
  Serious: Yes (Hospitalization)
  Sender: FDA-Public Use
  Company Number: US-ASTRAZENECA-2009UW15063

PATIENT
  Age: 34614 Day
  Sex: Male

DRUGS (8)
  1. ZESTRIL [Suspect]
     Indication: HYPERTENSION
     Route: 048
     Dates: start: 20060507
  2. COREG [Suspect]
     Indication: HYPERTENSION
     Route: 048
     Dates: start: 20090327
  3. RIVAROXABAN [Suspect]
     Indication: CEREBROVASCULAR ACCIDENT PROPHYLAXIS
     Route: 048
     Dates: start: 20090324, end: 20090519
  4. RIVAROXABAN [Suspect]
     Indication: THROMBOSIS PROPHYLAXIS
     Route: 048
     Dates: start: 20090324, end: 20090519
  5. RIVAROXABAN [Suspect]
     Route: 048
     Dates: start: 20090522, end: 20090525
  6. RIVAROXABAN [Suspect]
     Route: 048
     Dates: start: 20090522, end: 20090525
  7. RIVAROXABAN [Suspect]
     Route: 048
     Dates: start: 20090603, end: 20090713
  8. RIVAROXABAN [Suspect]
     Route: 048
     Dates: start: 20090603, end: 20090713

REACTIONS (4)
  - ASTHENIA [None]
  - POST PROCEDURAL HAEMORRHAGE [None]
  - SYNCOPE [None]
  - TOOTH EXTRACTION [None]
